FAERS Safety Report 19549740 (Version 3)
Quarter: 2021Q3

REPORT INFORMATION
  Report Type: Report from Study
  Country: None (occurrence: AU)
  Receive Date: 20210715
  Receipt Date: 20210905
  Transmission Date: 20211014
  Serious: Yes (Hospitalization)
  Sender: FDA-Public Use
  Company Number: AU-ABBVIE-21K-008-3986351-00

PATIENT
  Sex: Female

DRUGS (2)
  1. DUODOPA [Suspect]
     Active Substance: CARBIDOPA\LEVODOPA
     Indication: PARKINSON^S DISEASE
     Route: 050
     Dates: start: 20210618, end: 2021
  2. DUODOPA [Suspect]
     Active Substance: CARBIDOPA\LEVODOPA
     Dosage: DOSE INCREASED
     Route: 050
     Dates: start: 2021

REACTIONS (8)
  - Freezing phenomenon [Unknown]
  - Staphylococcal infection [Recovering/Resolving]
  - Blood test abnormal [Unknown]
  - Procedural complication [Unknown]
  - Dyskinesia [Recovered/Resolved]
  - Off label use [Unknown]
  - Insomnia [Unknown]
  - Stoma site discharge [Unknown]

NARRATIVE: CASE EVENT DATE: 2021
